FAERS Safety Report 4322160-3 (Version None)
Quarter: 2004Q1

REPORT INFORMATION
  Report Type: 
  Country: None (occurrence: None)
  Receive Date: 20040319
  Receipt Date: 20040302
  Transmission Date: 20041129
  Serious: Yes (Hospitalization)
  Sender: FDA-Public Use
  Company Number: F01200300398

PATIENT
  Age: 73 Year
  Sex: Male

DRUGS (6)
  1. OXALIPLATIN [Suspect]
     Indication: PANCREATIC CARCINOMA METASTATIC
     Dosage: 100 MG/M2 ON D2, Q2W
     Route: 042
     Dates: start: 20020828, end: 20020828
  2. (GEMCITABINE) - SOLUTION - 1000 MG/M2 [Suspect]
     Dosage: 1000 MG/M2 ON D1; Q2W
     Route: 042
     Dates: start: 20020827, end: 20020827
  3. CORDARONE [Concomitant]
  4. OMEPRAZOLE [Concomitant]
  5. INNOHEP [Concomitant]
  6. ASPEGIC 1000 [Concomitant]

REACTIONS (13)
  - ANAEMIA [None]
  - ATRIAL FLUTTER [None]
  - CANDIDIASIS [None]
  - CATHETER RELATED INFECTION [None]
  - CULTURE URINE POSITIVE [None]
  - ESCHERICHIA SEPSIS [None]
  - HYPERGLYCAEMIA [None]
  - MITRAL VALVE DISEASE [None]
  - MITRAL VALVE INCOMPETENCE [None]
  - STAPHYLOCOCCAL INFECTION [None]
  - STREPTOCOCCAL INFECTION [None]
  - THROMBOCYTOPENIA [None]
  - TRICUSPID VALVE INCOMPETENCE [None]
